FAERS Safety Report 24264078 (Version 1)
Quarter: 2024Q3

REPORT INFORMATION
  Report Type: Spontaneous
  Country: US (occurrence: None)
  Receive Date: 20240828
  Receipt Date: 20240828
  Transmission Date: 20241016
  Serious: Yes (Other)
  Sender: Public
  Company Number: None

PATIENT
  Age: 44 Year
  Sex: Female
  Weight: 117.9 kg

DRUGS (10)
  1. TUMS ULTRA [Suspect]
     Active Substance: CALCIUM CARBONATE
     Indication: Dyspepsia
     Dosage: 2 TABLETS AS NEEDED ORAL ?
     Route: 048
  2. LAMICTAL [Concomitant]
  3. ZOLOFT [Concomitant]
     Active Substance: SERTRALINE HYDROCHLORIDE
  4. KLONOPIN [Concomitant]
  5. ATIVAN [Concomitant]
  6. oxycodone/acetaminophen [Concomitant]
  7. provental inhaler [Concomitant]
  8. MIRENA [Concomitant]
     Active Substance: LEVONORGESTREL
  9. EPIPEN [Concomitant]
     Active Substance: EPINEPHRINE
  10. Tian Ma Gou Teng Wan [Concomitant]

REACTIONS (4)
  - Nervousness [None]
  - Palpitations [None]
  - Dizziness [None]
  - Product quality issue [None]

NARRATIVE: CASE EVENT DATE: 20240828
